FAERS Safety Report 23094167 (Version 1)
Quarter: 2023Q4

REPORT INFORMATION
  Report Type: Spontaneous
  Country: US (occurrence: None)
  Receive Date: 20231023
  Receipt Date: 20231023
  Transmission Date: 20240109
  Serious: No
  Sender: FDA-Public Use
  Company Number: 2023A235265

PATIENT
  Sex: Female

DRUGS (1)
  1. BREZTRI [Suspect]
     Active Substance: BUDESONIDE\FORMOTEROL\GLYCOPYRROLATE
     Route: 055

REACTIONS (10)
  - Oropharyngeal pain [Unknown]
  - Osteoporosis [Unknown]
  - Arthralgia [Unknown]
  - Influenza [Unknown]
  - Pneumonia [Unknown]
  - Headache [Unknown]
  - Muscle spasms [Unknown]
  - Device use issue [Unknown]
  - Incorrect dose administered by device [Unknown]
  - Incorrect dose administered [Unknown]
